FAERS Safety Report 12352401 (Version 1)
Quarter: 2016Q2

REPORT INFORMATION
  Report Type: Spontaneous
  Country: GB (occurrence: GB)
  Receive Date: 20160510
  Receipt Date: 20160510
  Transmission Date: 20160815
  Serious: Yes (Life-Threatening, Hospitalization)
  Sender: FDA-Public Use
  Company Number: PHHY2016GB060410

PATIENT
  Age: 44 Year
  Sex: Female

DRUGS (1)
  1. CLINDAMYCIN [Suspect]
     Active Substance: CLINDAMYCIN\CLINDAMYCIN PHOSPHATE
     Indication: STREPTOCOCCAL SEPSIS
     Route: 042
     Dates: start: 20160412, end: 20160422

REACTIONS (4)
  - Upper gastrointestinal haemorrhage [Unknown]
  - Cardiac arrest [Unknown]
  - Erosive oesophagitis [Not Recovered/Not Resolved]
  - Acidosis [Unknown]
